FAERS Safety Report 5534289-2 (Version None)
Quarter: 2007Q4

REPORT INFORMATION
  Report Type: 
  Country: None (occurrence: None)
  Receive Date: 20071203
  Receipt Date: 20071203
  Transmission Date: 20080405
  Serious: Yes (Other)
  Sender: FDA-Public Use
  Company Number: None

PATIENT
  Sex: Female
  Weight: 46.2669 kg

DRUGS (3)
  1. ROCEPHIN [Suspect]
     Indication: BRAIN ABSCESS
     Dosage: 26MG EVERY 12H IV
     Route: 042
     Dates: start: 20071117, end: 20071130
  2. ROCEPHIN [Suspect]
  3. FLAGYL [Suspect]
     Dosage: 500MG EVERY 8H IV
     Route: 042
     Dates: start: 20071107, end: 20071130

REACTIONS (1)
  - TONGUE OEDEMA [None]
